FAERS Safety Report 5387852-6 (Version None)
Quarter: 2007Q3

REPORT INFORMATION
  Report Type: 
  Country: None (occurrence: None)
  Receive Date: 20070716
  Receipt Date: 20060725
  Transmission Date: 20080115
  Serious: No
  Sender: FDA-Public Use
  Company Number: A0613297A

PATIENT
  Age: 48 Year

DRUGS (2)
  1. NICORETTE [Suspect]
  2. NICODERM CQ [Suspect]

REACTIONS (2)
  - INTENTIONAL DRUG MISUSE [None]
  - URTICARIA [None]
